FAERS Safety Report 23671551 (Version 1)
Quarter: 2024Q1

REPORT INFORMATION
  Report Type: Spontaneous
  Country: US (occurrence: US)
  Receive Date: 20240326
  Receipt Date: 20240326
  Transmission Date: 20240409
  Serious: Yes (Death, Life-Threatening, Hospitalization, Other)
  Sender: FDA-Public Use
  Company Number: US-MLMSERVICE-20240307-4871756-1

PATIENT
  Sex: Female

DRUGS (1)
  1. HYDROXYCHLOROQUINE [Suspect]
     Active Substance: HYDROXYCHLOROQUINE
     Indication: Systemic lupus erythematosus

REACTIONS (5)
  - Malnutrition [Fatal]
  - Cardiomyopathy [Fatal]
  - Cardiac failure chronic [Fatal]
  - Atrioventricular block complete [Fatal]
  - Ejection fraction decreased [Fatal]
